FAERS Safety Report 10307949 (Version 1)
Quarter: 2014Q3

REPORT INFORMATION
  Report Type: Spontaneous
  Country: US (occurrence: None)
  Receive Date: 20140711
  Receipt Date: 20140711
  Transmission Date: 20150326
  Serious: Yes (Hospitalization, Other)
  Sender: FDA-Public Use
  Company Number: ADR-2014-01031

PATIENT
  Age: 16 Year
  Sex: Female

DRUGS (9)
  1. LIORESAL [Suspect]
     Active Substance: BACLOFEN
     Indication: MUSCLE SPASTICITY
     Dosage: 1400 MCG/DAY; SEE B5
  2. NEURONTIN [Concomitant]
     Active Substance: GABAPENTIN
  3. KLONOPIN [Concomitant]
     Active Substance: CLONAZEPAM
  4. CEROVITE [Concomitant]
  5. VALPROIC ACID. [Concomitant]
     Active Substance: VALPROIC ACID
  6. PHENOBARBITAL. [Concomitant]
     Active Substance: PHENOBARBITAL
  7. MIRALAX [Concomitant]
     Active Substance: POLYETHYLENE GLYCOL 3350
  8. ZANTAC [Concomitant]
     Active Substance: RANITIDINE HYDROCHLORIDE
  9. CALCIUM CARBONATE. [Concomitant]
     Active Substance: CALCIUM CARBONATE

REACTIONS (7)
  - Overdose [None]
  - Somnolence [None]
  - Incorrect drug administration rate [None]
  - Bradycardia [None]
  - Depressed level of consciousness [None]
  - Drug withdrawal syndrome [None]
  - Athetosis [None]
